FAERS Safety Report 11918642 (Version 2)
Quarter: 2016Q1

REPORT INFORMATION
  Report Type: Spontaneous
  Country: US (occurrence: US)
  Receive Date: 20160115
  Receipt Date: 20160119
  Transmission Date: 20160526
  Serious: Yes (Hospitalization)
  Sender: FDA-Public Use
  Company Number: US-BAUSCH-BL-2016-001110

PATIENT
  Age: 71 Year
  Sex: Female

DRUGS (4)
  1. XENAZINE [Suspect]
     Active Substance: TETRABENAZINE
     Route: 048
  2. XENAZINE [Suspect]
     Active Substance: TETRABENAZINE
     Indication: HUNTINGTON^S DISEASE
     Route: 048
     Dates: start: 201512
  3. XENAZINE [Suspect]
     Active Substance: TETRABENAZINE
     Route: 048
  4. XENAZINE [Suspect]
     Active Substance: TETRABENAZINE
     Dosage: 25 MG ONCE IN THE MORNING, 12.5 MG IN THE AFTERNOON, AND 12.5 MG IN THE EVENING
     Route: 048

REACTIONS (1)
  - Hospitalisation [Recovered/Resolved]

NARRATIVE: CASE EVENT DATE: 201601
